FAERS Safety Report 5761884-8 (Version None)
Quarter: 2008Q2

REPORT INFORMATION
  Report Type: 
  Country: None (occurrence: None)
  Receive Date: 20080606
  Receipt Date: 20080527
  Transmission Date: 20081010
  Serious: Yes (Hospitalization, Other)
  Sender: FDA-Public Use
  Company Number: DE-ABBOTT-08P-062-0454019-00

PATIENT
  Sex: Female
  Weight: 71 kg

DRUGS (5)
  1. HUMIRA [Suspect]
     Indication: RHEUMATOID ARTHRITIS
     Route: 058
     Dates: start: 20050301, end: 20071015
  2. METHOTREXATE [Suspect]
     Indication: RHEUMATOID ARTHRITIS
     Route: 048
     Dates: start: 20030601, end: 20070930
  3. METHOTREXATE [Suspect]
     Dates: start: 20080401
  4. PREDNISOLONE [Concomitant]
     Indication: RHEUMATOID ARTHRITIS
     Route: 048
  5. ETORICOXIB [Concomitant]
     Indication: RHEUMATOID ARTHRITIS
     Route: 048
     Dates: start: 20040101

REACTIONS (9)
  - AGEUSIA [None]
  - ANOSMIA [None]
  - CHRONIC SINUSITIS [None]
  - EUSTACHIAN TUBE OBSTRUCTION [None]
  - GRANULOMA [None]
  - NASAL SEPTUM DEVIATION [None]
  - NASAL TURBINATE ABNORMALITY [None]
  - RHEUMATOID ARTHRITIS [None]
  - RHINITIS [None]
